FAERS Safety Report 15531510 (Version 1)
Quarter: 2018Q4

REPORT INFORMATION
  Report Type: Spontaneous
  Country: GB (occurrence: GB)
  Receive Date: 20181019
  Receipt Date: 20181019
  Transmission Date: 20190205
  Serious: Yes (Death, Other)
  Sender: FDA-Public Use
  Company Number: GB-ROCHE-2200620

PATIENT
  Age: 69 Year
  Sex: Male

DRUGS (1)
  1. HERCEPTIN [Suspect]
     Active Substance: TRASTUZUMAB
     Indication: PRODUCT USED FOR UNKNOWN INDICATION
     Route: 065

REACTIONS (4)
  - Myocardial infarction [Fatal]
  - Cerebrovascular accident [Fatal]
  - Pneumonia [Unknown]
  - Sepsis [Unknown]
